FAERS Safety Report 7735345-0 (Version None)
Quarter: 2011Q3

REPORT INFORMATION
  Report Type: 
  Country: None (occurrence: None)
  Receive Date: 20110907
  Receipt Date: 20110826
  Transmission Date: 20111222
  Serious: Yes (Hospitalization, Other)
  Sender: FDA-Public Use
  Company Number: PHFR2011GB04031

PATIENT
  Sex: Female
  Weight: 95 kg

DRUGS (14)
  1. OMEPRAZOLE [Concomitant]
  2. CANDESARTAN CILEXETIL [Concomitant]
  3. METHOTREXATE [Concomitant]
     Indication: WEGENER'S GRANULOMATOSIS
     Dosage: 15 MG, QW
     Dates: start: 20090601
  4. CALCIUM CARBONATE [Concomitant]
     Dosage: 500 MG, BID
  5. SODIUM BICARBONATE [Concomitant]
  6. ALENDRONATE SODIUM [Concomitant]
     Dosage: UNK
  7. DOXYCYCLINE [Concomitant]
  8. MYCOPHENOLIC ACID [Suspect]
     Indication: WEGENER'S GRANULOMATOSIS
     Dosage: 1 G, TID
     Dates: start: 20070201
  9. DAPSONE [Concomitant]
  10. ONDANSETRON [Concomitant]
     Dosage: 8 MG, TID
  11. PREDNISOLONE [Concomitant]
     Dosage: 10 MG, UNK
  12. WARFARIN [Concomitant]
  13. ENALAPRIL MALEATE [Concomitant]
     Dosage: 5 MG, UNK
  14. FOLIC ACID [Concomitant]

REACTIONS (5)
  - LYMPHOCYTE COUNT DECREASED [None]
  - DRUG INEFFECTIVE [None]
  - WEGENER'S GRANULOMATOSIS [None]
  - CONDITION AGGRAVATED [None]
  - PULMONARY GRANULOMA [None]
